FAERS Safety Report 15104843 (Version 1)
Quarter: 2018Q3

REPORT INFORMATION
  Report Type: Spontaneous
  Country: CN (occurrence: CN)
  Receive Date: 20180703
  Receipt Date: 20180703
  Transmission Date: 20181010
  Serious: Yes (Other)
  Sender: FDA-Public Use
  Company Number: CN-VALIDUS PHARMACEUTICALS LLC-CN-2018VAL000825

PATIENT

DRUGS (2)
  1. CALCITRIOL. [Suspect]
     Active Substance: CALCITRIOL
     Indication: CARDIOVASCULAR SOMATIC SYMPTOM DISORDER
     Dosage: 0.25 ?G, 2?4 TIMES PER DAY
     Route: 048
  2. WENXIN KELI (TRADITIONAL CHINESE MEDICINE) [Suspect]
     Active Substance: HERBALS
     Indication: CARDIOVASCULAR SOMATIC SYMPTOM DISORDER
     Dosage: 5 GRANULES/TIME, TID
     Route: 065

REACTIONS (1)
  - Bradycardia [Unknown]
